FAERS Safety Report 19523685 (Version 2)
Quarter: 2025Q2

REPORT INFORMATION
  Report Type: Report from Study
  Country: CA (occurrence: CA)
  Receive Date: 20210712
  Receipt Date: 20250612
  Transmission Date: 20250716
  Serious: Yes (Other)
  Sender: BIOGEN
  Company Number: CA-BIOGEN-2021BI01025371

PATIENT
  Sex: Female

DRUGS (2)
  1. TECFIDERA [Suspect]
     Active Substance: DIMETHYL FUMARATE
     Indication: Multiple sclerosis
     Route: 050
     Dates: start: 20181213, end: 20190930
  2. VANCOMYCIN [Concomitant]
     Active Substance: VANCOMYCIN
     Indication: Product used for unknown indication
     Route: 050

REACTIONS (5)
  - Crohn^s disease [Unknown]
  - Arteriosclerosis coronary artery [Unknown]
  - Angina pectoris [Unknown]
  - Urinary tract infection [Unknown]
  - Diarrhoea [Unknown]
